FAERS Safety Report 5430685-2 (Version None)
Quarter: 2007Q3

REPORT INFORMATION
  Report Type: 
  Country: None (occurrence: None)
  Receive Date: 20070830
  Receipt Date: 20070824
  Transmission Date: 20080115
  Serious: Yes (Congenital Anomaly, Other)
  Sender: FDA-Public Use
  Company Number: DK-ABBOTT-07P-044-0414957-00

PATIENT
  Sex: Female

DRUGS (2)
  1. DEPAKENE [Suspect]
     Indication: DRUG EXPOSURE DURING PREGNANCY
     Route: 064
  2. LAMOTRIGINE [Suspect]
     Indication: DRUG EXPOSURE DURING PREGNANCY
     Route: 064

REACTIONS (3)
  - ABORTION INDUCED [None]
  - CONGENITAL HYDROCEPHALUS [None]
  - DRUG EXPOSURE DURING PREGNANCY [None]
